FAERS Safety Report 9580801 (Version 1)
Quarter: 2013Q4

REPORT INFORMATION
  Report Type: Spontaneous
  Country: US (occurrence: US)
  Receive Date: 20131002
  Receipt Date: 20131002
  Transmission Date: 20140711
  Serious: Yes (Hospitalization, Other)
  Sender: FDA-Public Use
  Company Number: US-PFIZER INC-2013279649

PATIENT
  Age: 59 Year
  Sex: Female
  Weight: 65.76 kg

DRUGS (3)
  1. LYRICA [Suspect]
     Indication: NEUROPATHY PERIPHERAL
     Dosage: 50 MG, 3X/DAY
     Dates: start: 2012
  2. LYRICA [Suspect]
     Dosage: 100 MG, 3X/DAY
  3. JANUVIA [Concomitant]
     Dosage: 100 MG, DAILY

REACTIONS (6)
  - Gangrene [Unknown]
  - Pituitary-dependent Cushing^s syndrome [Unknown]
  - Pyrexia [Unknown]
  - Furuncle [Unknown]
  - Fall [Unknown]
  - Ankle fracture [Unknown]
